FAERS Safety Report 9222686 (Version 1)
Quarter: 2013Q2

REPORT INFORMATION
  Report Type: Spontaneous
  Country: NO (occurrence: NO)
  Receive Date: 20130410
  Receipt Date: 20130410
  Transmission Date: 20140414
  Serious: Yes (Death)
  Sender: FDA-Public Use
  Company Number: NO-ROCHE-1206749

PATIENT
  Age: 84 Year
  Sex: Male

DRUGS (1)
  1. ACTILYSE [Suspect]
     Indication: CEREBRAL INFARCTION
     Route: 042
     Dates: start: 20110327, end: 20110327

REACTIONS (4)
  - Skin haemorrhage [Fatal]
  - Death [Fatal]
  - Pharyngeal haemorrhage [Fatal]
  - Subarachnoid haemorrhage [Fatal]
